FAERS Safety Report 13231997 (Version 2)
Quarter: 2017Q1

REPORT INFORMATION
  Report Type: Report from Study
  Country: DE (occurrence: DE)
  Receive Date: 20170214
  Receipt Date: 20170328
  Transmission Date: 20170428
  Serious: Yes (Other)
  Sender: FDA-Public Use
  Company Number: DE-INCYTE CORPORATION-2017IN000775

PATIENT
  Sex: Male

DRUGS (6)
  1. JAKAVI [Suspect]
     Active Substance: RUXOLITINIB
     Indication: POLYCYTHAEMIA VERA
     Dosage: 20 MG, BID
     Route: 048
     Dates: start: 20160210, end: 20160315
  2. CONCOR [Concomitant]
     Active Substance: BISOPROLOL FUMARATE
     Indication: CARDIAC FAILURE
     Dosage: 1.25 MG, BID
     Route: 048
     Dates: start: 20130510
  3. JAKAVI [Suspect]
     Active Substance: RUXOLITINIB
     Dosage: 15 MG, BID
     Route: 048
     Dates: start: 20160316, end: 20160425
  4. JAKAVI [Suspect]
     Active Substance: RUXOLITINIB
     Dosage: 20 MG, BID
     Route: 048
     Dates: start: 20160426
  5. ASPIRIN. [Concomitant]
     Active Substance: ASPIRIN
     Indication: POLYCYTHAEMIA VERA
     Dosage: 100 MG, QD
     Route: 048
     Dates: start: 20140905
  6. INDAPAMID [Concomitant]
     Active Substance: INDAPAMIDE
     Indication: HYPERTENSION
     Dosage: 2.5 MG, QD
     Route: 048
     Dates: start: 20130510

REACTIONS (2)
  - Skin cancer [Not Recovered/Not Resolved]
  - Second primary malignancy [Not Recovered/Not Resolved]

NARRATIVE: CASE EVENT DATE: 20161026
